FAERS Safety Report 18189531 (Version 1)
Quarter: 2020Q3

REPORT INFORMATION
  Report Type: Report from Study
  Country: None (occurrence: US)
  Receive Date: 20200825
  Receipt Date: 20200825
  Transmission Date: 20201103
  Serious: Yes (Other)
  Sender: FDA-Public Use
  Company Number: US-ABBVIE-20K-163-3534838-00

PATIENT
  Sex: Male

DRUGS (1)
  1. IMBRUVICA [Suspect]
     Active Substance: IBRUTINIB
     Indication: LYMPHOCYTIC LEUKAEMIA
     Route: 048
     Dates: start: 20180806

REACTIONS (5)
  - Ureteric obstruction [Not Recovered/Not Resolved]
  - Affective disorder [Unknown]
  - Decreased activity [Not Recovered/Not Resolved]
  - Intestinal mass [Unknown]
  - Intestinal obstruction [Not Recovered/Not Resolved]
